FAERS Safety Report 6772142-7 (Version None)
Quarter: 2010Q2

REPORT INFORMATION
  Report Type: 
  Country: None (occurrence: None)
  Receive Date: 20100616
  Receipt Date: 20100608
  Transmission Date: 20101027
  Serious: Yes (Life-Threatening, Hospitalization)
  Sender: FDA-Public Use
  Company Number: B0660843A

PATIENT
  Sex: Male

DRUGS (1)
  1. ZENTEL [Suspect]
     Indication: ASCARIASIS
     Dosage: 400MG PER DAY
     Dates: start: 20100601, end: 20100601

REACTIONS (3)
  - ALLERGIC OEDEMA [None]
  - HYPERSENSITIVITY [None]
  - URTICARIA [None]
